FAERS Safety Report 7523218-8 (Version None)
Quarter: 2011Q2

REPORT INFORMATION
  Report Type: 
  Country: None (occurrence: None)
  Receive Date: 20110603
  Receipt Date: 20110519
  Transmission Date: 20111010
  Serious: Yes (Hospitalization)
  Sender: FDA-Public Use
  Company Number: RS-WATSON-2011-03936

PATIENT
  Age: 55 Year
  Sex: Male

DRUGS (2)
  1. TICLOPIDINE HCL [Suspect]
     Indication: ANTIPLATELET THERAPY
     Dosage: 200 MG, DAILY
     Dates: start: 20060401
  2. TICLOPIDINE HCL [Suspect]
     Indication: ANTIPLATELET THERAPY
     Dosage: 200 MG, DAILY
     Route: 065
     Dates: start: 20060401

REACTIONS (2)
  - APLASTIC ANAEMIA [None]
  - NEUROBORRELIOSIS [None]
